FAERS Safety Report 7878396-8 (Version None)
Quarter: 2011Q4

REPORT INFORMATION
  Report Type: 
  Country: None (occurrence: None)
  Receive Date: 20111028
  Receipt Date: 20111017
  Transmission Date: 20120403
  Serious: Yes (Other)
  Sender: FDA-Public Use
  Company Number: 2011P1009498

PATIENT
  Age: 36 Year
  Sex: Female
  Weight: 50.3493 kg

DRUGS (3)
  1. PROGESTERONE INJ [Suspect]
     Indication: INFERTILITY
     Dosage: 50 MG;QD;IM
     Route: 030
     Dates: start: 20111011, end: 20111014
  2. LEVOTHROID [Concomitant]
  3. VITAMIN AND MINERAL PRENATAL SUPPLEMENT W/ FOLIC ACID CAP [Concomitant]

REACTIONS (7)
  - PYREXIA [None]
  - MATERNAL EXPOSURE DURING PREGNANCY [None]
  - CHILLS [None]
  - PROGESTERONE INCREASED [None]
  - ABORTION SPONTANEOUS [None]
  - MYALGIA [None]
  - INJECTION SITE PAIN [None]
